FAERS Safety Report 25206298 (Version 1)
Quarter: 2025Q2

REPORT INFORMATION
  Report Type: Spontaneous
  Country: DE (occurrence: DE)
  Receive Date: 20250417
  Receipt Date: 20250417
  Transmission Date: 20250717
  Serious: Yes (Hospitalization)
  Sender: AUROBINDO
  Company Number: DE-SHIRE-DE201903309

PATIENT
  Age: 48 Year
  Sex: Female
  Weight: 146 kg

DRUGS (20)
  1. AMLODIPINE [Suspect]
     Active Substance: AMLODIPINE BESYLATE
     Indication: Hypertension
     Dosage: 5 MILLIGRAM, ONCE A DAY (
     Route: 048
     Dates: start: 201304, end: 2016
  2. HYDROCORTISONE [Suspect]
     Active Substance: HYDROCORTISONE
     Indication: Adrenal insufficiency
     Dosage: 100 MILLIGRAM, ONCE A DAY (50 MILLIGRAM, 2X/DAY:BID )
     Route: 048
     Dates: start: 201401, end: 201405
  3. HYDROCORTISONE [Suspect]
     Active Substance: HYDROCORTISONE
     Dosage: 60 MILLIGRAM, ONCE A DAY (30 MILLIGRAM, 2X/DAY:BID )
     Route: 048
     Dates: start: 201405, end: 201502
  4. HYDROCHLOROTHIAZIDE [Concomitant]
     Active Substance: HYDROCHLOROTHIAZIDE
     Indication: Hypertension
     Dosage: 25 MILLIGRAM, ONCE A DAY (25 MILLIGRAM, QD )
     Route: 048
     Dates: start: 201304, end: 2016
  5. BISOPROLOL [Concomitant]
     Active Substance: BISOPROLOL
     Indication: Hypertension
     Dosage: 5 MILLIGRAM, ONCE A DAY (5 MILLIGRAM, QD )
     Route: 048
     Dates: start: 201304, end: 2016
  6. RAMIPRIL [Concomitant]
     Active Substance: RAMIPRIL
     Indication: Hypertension
     Dosage: 5 MILLIGRAM, ONCE A DAY (5 MILLIGRAM, QD )
     Route: 048
     Dates: start: 201304, end: 2016
  7. SIMVASTATIN [Concomitant]
     Active Substance: SIMVASTATIN
     Indication: Hypercholesterolaemia
     Dosage: 40 MILLIGRAM, ONCE A DAY (40 MILLIGRAM, QD )
     Route: 048
     Dates: start: 201304, end: 2016
  8. METOCLOPRAMIDE [Concomitant]
     Active Substance: METOCLOPRAMIDE
     Indication: Chronic gastritis
     Route: 065
     Dates: start: 2013, end: 2014
  9. CELECOXIB [Concomitant]
     Active Substance: CELECOXIB
     Indication: Spinal pain
     Dosage: 400 MILLIGRAM, ONCE A DAY (200 MILLIGRAM, BID )
     Route: 048
     Dates: start: 201304, end: 2016
  10. HYDROMORPHONE HCL [Concomitant]
     Active Substance: HYDROMORPHONE HYDROCHLORIDE
     Indication: Spinal pain
     Dosage: 48 MILLIGRAM, ONCE A DAY (24 MILLIGRAM, BID )
     Route: 048
     Dates: start: 201304, end: 201611
  11. PREGABALIN [Concomitant]
     Active Substance: PREGABALIN
     Indication: Spinal pain
     Dosage: 600 MILLIGRAM, ONCE A DAY (300 MILLIGRAM, BID )
     Route: 048
     Dates: start: 2016
  12. QUETIAPINE [Concomitant]
     Active Substance: QUETIAPINE
     Indication: Depression
     Dosage: 25 MILLIGRAM, ONCE A DAY (25 MILLIGRAM, QD )
     Route: 048
     Dates: start: 2013, end: 201404
  13. TEMAZEPAM [Concomitant]
     Active Substance: TEMAZEPAM
     Indication: Depression
     Dosage: 40 MILLIGRAM, ONCE A DAY (40 MILLIGRAM, QD )
     Route: 048
     Dates: start: 2013, end: 201406
  14. AMITRIPTYLINE [Concomitant]
     Active Substance: AMITRIPTYLINE
     Indication: Depression
     Dosage: 150 MILLIGRAM, ONCE A DAY (150 MILLIGRAM, QD )
     Route: 048
     Dates: start: 2013, end: 201404
  15. Duloxetin ab [Concomitant]
     Indication: Depression
     Dosage: 150 MILLIGRAM, ONCE A DAY (150 MILLIGRAM, QD )
     Route: 048
     Dates: start: 2013, end: 2014
  16. METFORMIN [Concomitant]
     Active Substance: METFORMIN HYDROCHLORIDE
     Indication: Type 2 diabetes mellitus
     Dosage: 2000 MILLIGRAM, ONCE A DAY (1000 MILLIGRAM, BID )
     Route: 048
     Dates: start: 2013, end: 2014
  17. LEVOTHYROXINE SODIUM [Concomitant]
     Active Substance: LEVOTHYROXINE SODIUM
     Indication: Hypopituitarism
     Dosage: 150 MICROGRAM, ONCE A DAY (150 MICROGRAM, QD )
     Route: 048
     Dates: start: 2014, end: 201510
  18. LEVOTHYROXINE SODIUM [Concomitant]
     Active Substance: LEVOTHYROXINE SODIUM
     Indication: Hypothyroidism
     Dosage: 225 MICROGRAM, ONCE A DAY (225 MILLIGRAM, QD )
     Route: 048
     Dates: start: 2014, end: 201510
  19. INSULIN NOS [Concomitant]
     Active Substance: INSULIN NOS
     Indication: Type 2 diabetes mellitus
     Dosage: UNK, ONCE A DAY
     Route: 058
     Dates: start: 201401, end: 201405
  20. PANTOPRAZOLE SODIUM [Concomitant]
     Active Substance: PANTOPRAZOLE SODIUM
     Indication: Chronic gastritis
     Route: 048
     Dates: start: 201104, end: 201405

REACTIONS (1)
  - Therapeutic response changed [Recovered/Resolved]

NARRATIVE: CASE EVENT DATE: 20140528
